FAERS Safety Report 9011721 (Version 1)
Quarter: 2013Q1

REPORT INFORMATION
  Report Type: Spontaneous
  Country: US (occurrence: US)
  Receive Date: 20130114
  Receipt Date: 20130114
  Transmission Date: 20140127
  Serious: Yes (Other)
  Sender: FDA-Public Use
  Company Number: US-009507513-0907USA03811

PATIENT
  Age: 7 Year
  Sex: Male
  Weight: 38.56 kg

DRUGS (3)
  1. SINGULAIR [Suspect]
     Indication: MULTIPLE ALLERGIES
     Dosage: 10 MG, HS
     Route: 048
     Dates: start: 20080801, end: 20081206
  2. SINGULAIR [Suspect]
     Indication: ASTHMA
  3. ALBUTEROL [Concomitant]
     Indication: ASTHMA
     Dosage: UNK UNK, PRN
     Route: 055

REACTIONS (10)
  - Abnormal behaviour [Recovered/Resolved]
  - Aggression [Recovered/Resolved]
  - Antisocial behaviour [Recovered/Resolved]
  - Crying [Recovered/Resolved]
  - Insomnia [Recovered/Resolved]
  - Irritability [Recovered/Resolved]
  - Screaming [Recovered/Resolved]
  - Self-injurious ideation [Recovered/Resolved]
  - Unevaluable event [Recovered/Resolved]
  - Overdose [Unknown]
